FAERS Safety Report 5240168-0 (Version None)
Quarter: 2007Q1

REPORT INFORMATION
  Report Type: 
  Country: None (occurrence: None)
  Receive Date: 20070216
  Receipt Date: 20070207
  Transmission Date: 20070707
  Serious: Yes (Hospitalization, Other)
  Sender: FDA-Public Use
  Company Number: US-PFIZER INC-2007011759

PATIENT
  Sex: Female
  Weight: 97.1 kg

DRUGS (3)
  1. CHANTIX [Suspect]
     Indication: EX-SMOKER
     Dosage: FREQ:EVERY DAY
     Dates: start: 20070107, end: 20070129
  2. NORVASC [Suspect]
     Indication: BLOOD PRESSURE
  3. MORPHINE [Suspect]
     Indication: HEADACHE
     Route: 042

REACTIONS (7)
  - BLOOD PRESSURE DECREASED [None]
  - BLOOD PRESSURE FLUCTUATION [None]
  - DYSGEUSIA [None]
  - ERYTHEMA [None]
  - HEADACHE [None]
  - HYPERTENSION [None]
  - SINUSITIS [None]
